FAERS Safety Report 21506156 (Version 1)
Quarter: 2022Q4

REPORT INFORMATION
  Report Type: Spontaneous
  Country: BR (occurrence: BR)
  Receive Date: 20221026
  Receipt Date: 20221026
  Transmission Date: 20230112
  Serious: Yes (Death, Life-Threatening, Hospitalization, Other)
  Sender: FDA-Public Use
  Company Number: BR-AMGEN-BRASP2022181933

PATIENT

DRUGS (1)
  1. FILGRASTIM [Suspect]
     Active Substance: FILGRASTIM
     Indication: Prophylaxis
     Route: 065

REACTIONS (25)
  - Renal failure [Fatal]
  - Sepsis [Fatal]
  - Neutropenia [Unknown]
  - Mucosal inflammation [Unknown]
  - Diarrhoea [Unknown]
  - Vomiting [Unknown]
  - Nausea [Unknown]
  - Enterobacter infection [Unknown]
  - Abdominal pain [Unknown]
  - Cough [Unknown]
  - Sinusitis [Unknown]
  - Pneumonia [Unknown]
  - Pyrexia [Unknown]
  - Hypotension [Unknown]
  - Pseudomonas infection [Unknown]
  - Staphylococcal infection [Unknown]
  - Cellulitis [Unknown]
  - Tumour ulceration [Unknown]
  - Staphylococcal infection [Unknown]
  - Streptococcal infection [Unknown]
  - Klebsiella infection [Unknown]
  - Escherichia infection [Unknown]
  - Bacterial infection [Unknown]
  - Infected skin ulcer [Unknown]
  - Abscess [Unknown]
